FAERS Safety Report 4359198-6 (Version None)
Quarter: 2004Q2

REPORT INFORMATION
  Report Type: 
  Country: None (occurrence: None)
  Receive Date: 20040512
  Receipt Date: 20040422
  Transmission Date: 20050107
  Serious: Yes (Hospitalization)
  Sender: FDA-Public Use
  Company Number: EWC040438996

PATIENT
  Age: 11 Year
  Sex: Male
  Weight: 33 kg

DRUGS (2)
  1. HUMATROPE [Suspect]
     Indication: BODY HEIGHT BELOW NORMAL
     Dosage: 0.035 MG/KG 1 DAY
     Dates: start: 20040101, end: 20040201
  2. HUMATROPE [Suspect]
     Indication: GROWTH HORMONE DEFICIENCY
     Dosage: 0.035 MG/KG 1 DAY
     Dates: start: 20040101, end: 20040201

REACTIONS (4)
  - BODY TEMPERATURE INCREASED [None]
  - COMPUTERISED TOMOGRAM ABNORMAL [None]
  - GRAND MAL CONVULSION [None]
  - NUCLEAR MAGNETIC RESONANCE IMAGING ABNORMAL [None]
